FAERS Safety Report 18123701 (Version 1)
Quarter: 2020Q3

REPORT INFORMATION
  Report Type: Report from Study
  Country: US (occurrence: US)
  Receive Date: 20200807
  Receipt Date: 20200807
  Transmission Date: 20201103
  Serious: No
  Sender: FDA-Public Use
  Company Number: US-AEGERION PHARMACEUTICAL, INC-AEGR004911

PATIENT
  Age: 38 Year
  Sex: Male

DRUGS (44)
  1. METRELEPTIN [Suspect]
     Active Substance: METRELEPTIN
     Dosage: 6.5 MG, QD
     Dates: start: 20161003, end: 20161009
  2. METRELEPTIN [Suspect]
     Active Substance: METRELEPTIN
     Dosage: 7.25 MG, QD
     Dates: start: 20161024, end: 20161030
  3. HUMULIN R [Concomitant]
     Active Substance: INSULIN HUMAN
     Indication: DIABETES MELLITUS
     Dosage: 2000 IU, QD (CONT. PUMP)
     Route: 058
  4. ATORVASTATIN [Concomitant]
     Active Substance: ATORVASTATIN
     Indication: HYPERTRIGLYCERIDAEMIA
     Dosage: 20 MG, QD
     Route: 048
     Dates: start: 20161223
  5. AMIODARONE [Concomitant]
     Active Substance: AMIODARONE
     Indication: CARDIAC FAILURE CONGESTIVE
     Dosage: 200 MG, QD
     Route: 048
     Dates: start: 20191004
  6. METRELEPTIN [Suspect]
     Active Substance: METRELEPTIN
     Dosage: 3.25 MG, QD
     Dates: start: 20160704, end: 20160710
  7. METRELEPTIN [Suspect]
     Active Substance: METRELEPTIN
     Dosage: 4.25 MG, QD
     Dates: start: 20160801, end: 20160807
  8. METRELEPTIN [Suspect]
     Active Substance: METRELEPTIN
     Dosage: 5.75 MG, QD
     Dates: start: 20160912, end: 20160918
  9. METRELEPTIN [Suspect]
     Active Substance: METRELEPTIN
     Dosage: 7.0 MG, QD
     Dates: start: 20161017, end: 20161023
  10. SACUBITRIL W/VALSARTAN [Concomitant]
     Active Substance: SACUBITRIL\VALSARTAN
     Indication: CARDIAC FAILURE CONGESTIVE
     Dosage: 51 MG, QD
     Route: 048
     Dates: start: 20180828
  11. GLUCAGON. [Concomitant]
     Active Substance: GLUCAGON
     Indication: HYPOGLYCAEMIA
     Dosage: 1 MG, PRN
     Route: 058
  12. BISOPROLOL [Concomitant]
     Active Substance: BISOPROLOL
     Indication: HYPERTENSION
     Dosage: 10 MG, QD
     Route: 048
     Dates: start: 20190822
  13. METRELEPTIN [Suspect]
     Active Substance: METRELEPTIN
     Dosage: 2.75 MG, QD
     Dates: start: 20160620, end: 20160626
  14. METRELEPTIN [Suspect]
     Active Substance: METRELEPTIN
     Dosage: 8.5 MG, QD
     Dates: start: 20161128, end: 20161204
  15. METRELEPTIN [Suspect]
     Active Substance: METRELEPTIN
     Dosage: 8.75 MG, QD
     Dates: start: 20161205, end: 20161211
  16. METRELEPTIN [Suspect]
     Active Substance: METRELEPTIN
     Dosage: 3.0 MG, QD
     Dates: start: 20160627, end: 20160704
  17. METRELEPTIN [Suspect]
     Active Substance: METRELEPTIN
     Dosage: 4.0 MG, QD
     Dates: start: 20160725, end: 20160731
  18. METRELEPTIN [Suspect]
     Active Substance: METRELEPTIN
     Dosage: 6.25 MG, QD
     Dates: start: 20160926, end: 20161002
  19. METRELEPTIN [Suspect]
     Active Substance: METRELEPTIN
     Dosage: 8.25 MG, QD
     Dates: start: 20161121, end: 20161127
  20. ASPIRIN                            /00002701/ [Concomitant]
     Active Substance: ASPIRIN
     Indication: CARDIAC FAILURE CONGESTIVE
     Dosage: 81 MG, QD
     Route: 048
     Dates: start: 20180315
  21. COENZYME Q10 [Concomitant]
     Active Substance: DIETARY SUPPLEMENT\UBIDECARENONE
     Indication: CARDIOMYOPATHY
     Dosage: 10 MG, QD
     Route: 048
     Dates: start: 201711
  22. METRELEPTIN [Suspect]
     Active Substance: METRELEPTIN
     Dosage: 4.75 MG, QD
     Dates: start: 20160815, end: 20160821
  23. METRELEPTIN [Suspect]
     Active Substance: METRELEPTIN
     Dosage: 7.5 MG, QD
     Dates: start: 20161031, end: 20161106
  24. METRELEPTIN [Suspect]
     Active Substance: METRELEPTIN
     Dosage: 8 MG, QD
     Dates: start: 20161114, end: 20161120
  25. METRELEPTIN [Suspect]
     Active Substance: METRELEPTIN
     Dosage: 5 MG, QD
     Dates: start: 20160822, end: 20160828
  26. METRELEPTIN [Suspect]
     Active Substance: METRELEPTIN
     Dosage: 6 MG, QD
     Dates: start: 20160919, end: 20160925
  27. METRELEPTIN [Suspect]
     Active Substance: METRELEPTIN
     Dosage: 6.75 MG, QD
     Dates: start: 20161010, end: 20161016
  28. METRELEPTIN [Suspect]
     Active Substance: METRELEPTIN
     Dosage: 7.75 MG, QD
     Dates: start: 20161107, end: 20161113
  29. DIGOXIN. [Concomitant]
     Active Substance: DIGOXIN
     Indication: ATRIAL FIBRILLATION
     Dosage: 125 UG, BID
     Route: 048
     Dates: start: 20180108
  30. WARFARIN [Concomitant]
     Active Substance: WARFARIN
     Indication: ATRIAL FIBRILLATION
     Dosage: 7.5 MG, QD
     Route: 048
     Dates: start: 20180315
  31. AZATHIOPRINE. [Concomitant]
     Active Substance: AZATHIOPRINE
     Indication: IMMUNOSUPPRESSION
     Dosage: 100 MG, QD
     Route: 048
     Dates: start: 20190829
  32. PREDNISONE. [Concomitant]
     Active Substance: PREDNISONE
     Indication: PRURITUS
     Dosage: 10 MG, QD
     Route: 048
     Dates: start: 20200521, end: 20200531
  33. TORSEMIDE. [Concomitant]
     Active Substance: TORSEMIDE
     Indication: CARDIAC FAILURE CONGESTIVE
     Dosage: 30 MG, QD
     Route: 048
     Dates: start: 20180828
  34. METRELEPTIN [Suspect]
     Active Substance: METRELEPTIN
     Indication: LIPODYSTROPHY ACQUIRED
     Dosage: 2.5 MG, QD
     Dates: start: 20160613, end: 20160619
  35. METRELEPTIN [Suspect]
     Active Substance: METRELEPTIN
     Dosage: 3.75 MG, QD
     Dates: start: 20160718, end: 20160724
  36. METRELEPTIN [Suspect]
     Active Substance: METRELEPTIN
     Dosage: 4.5 MG, QD
     Dates: start: 20160808, end: 20160814
  37. METRELEPTIN [Suspect]
     Active Substance: METRELEPTIN
     Dosage: 9.25 MG, QD
     Dates: start: 20161219, end: 20161221
  38. OMEGA 3 FISH OIL                   /01334101/ [Concomitant]
     Active Substance: FISH OIL
     Indication: HYPERTRIGLYCERIDAEMIA
     Dosage: 1 G, QD
     Route: 048
     Dates: start: 2017
  39. SPIRONOLACTONE. [Suspect]
     Active Substance: SPIRONOLACTONE
     Indication: HYPERTENSION
     Dosage: 25 MG, QD
     Route: 048
     Dates: start: 20190612
  40. METRELEPTIN [Suspect]
     Active Substance: METRELEPTIN
     Dosage: 3.5 MG, QD
     Dates: start: 20160711, end: 20160717
  41. METRELEPTIN [Suspect]
     Active Substance: METRELEPTIN
     Dosage: 5.25 MG, QD
     Dates: start: 20160829, end: 20160904
  42. METRELEPTIN [Suspect]
     Active Substance: METRELEPTIN
     Dosage: 5.5 MG, QD
     Dates: start: 20160905, end: 20160911
  43. METRELEPTIN [Suspect]
     Active Substance: METRELEPTIN
     Dosage: 9 MG, QD
     Dates: start: 20161212, end: 20161218
  44. METRELEPTIN [Suspect]
     Active Substance: METRELEPTIN
     Dosage: 5.0 MG, QD
     Dates: start: 20161222

REACTIONS (1)
  - Pruritus [Recovered/Resolved]

NARRATIVE: CASE EVENT DATE: 202005
